FAERS Safety Report 14995225 (Version 1)
Quarter: 2018Q2

REPORT INFORMATION
  Report Type: Spontaneous
  Country: US (occurrence: US)
  Receive Date: 20180611
  Receipt Date: 20180611
  Transmission Date: 20180711
  Serious: Yes (Other)
  Sender: FDA-Public Use
  Company Number: US-IBIGEN-2018.04212

PATIENT
  Age: 48 Year
  Sex: Female

DRUGS (2)
  1. FLUCONAZOLE. [Suspect]
     Active Substance: FLUCONAZOLE
     Route: 042
  2. PENICILLIN G [Suspect]
     Active Substance: PENICILLIN G
     Indication: MENINGITIS
     Route: 042

REACTIONS (1)
  - Cerebrospinal fluid leakage [Unknown]
